FAERS Safety Report 26080829 (Version 1)
Quarter: 2025Q4

REPORT INFORMATION
  Report Type: Spontaneous
  Country: CN (occurrence: CN)
  Receive Date: 20251124
  Receipt Date: 20251124
  Transmission Date: 20260117
  Serious: Yes (Other)
  Sender: Kenvue
  Company Number: CN-KENVUE-20251105971

PATIENT
  Age: 11 Year
  Weight: 32 kg

DRUGS (1)
  1. CHILDRENS MOTRIN [Suspect]
     Active Substance: IBUPROFEN
     Indication: Pyrexia
     Dosage: 10 MILLILITER, SINGLE

REACTIONS (4)
  - Product use issue [Unknown]
  - Rash [Recovering/Resolving]
  - Papule [Recovering/Resolving]
  - Urticaria [Recovering/Resolving]
